FAERS Safety Report 7648625-4 (Version None)
Quarter: 2011Q3

REPORT INFORMATION
  Report Type: 
  Country: None (occurrence: None)
  Receive Date: 20110801
  Receipt Date: 20110720
  Transmission Date: 20111222
  Serious: Yes (Hospitalization, Other)
  Sender: FDA-Public Use
  Company Number: PHHY2011FR64994

PATIENT
  Age: 64 Year
  Sex: Male

DRUGS (4)
  1. TERCIAN [Suspect]
     Route: 048
     Dates: end: 20110203
  2. CLOZAPINE [Suspect]
     Route: 048
     Dates: end: 20110203
  3. TERCIAN [Suspect]
     Dosage: UNK UKN, UNK
     Dates: start: 20110301
  4. TRIMEPRAZINE TARTRATE [Suspect]
     Route: 048
     Dates: end: 20110203

REACTIONS (6)
  - FAECAL VOMITING [None]
  - INTESTINAL DILATATION [None]
  - INTESTINAL PERFORATION [None]
  - SUBILEUS [None]
  - EATING DISORDER [None]
  - AGGRESSION [None]
